FAERS Safety Report 6918691-X (Version None)
Quarter: 2010Q3

REPORT INFORMATION
  Report Type: 
  Country: None (occurrence: None)
  Receive Date: 20100811
  Receipt Date: 20100728
  Transmission Date: 20110219
  Serious: Yes (Hospitalization, Other)
  Sender: FDA-Public Use
  Company Number: PHHY2010DE49918

PATIENT
  Sex: Male

DRUGS (39)
  1. LEPONEX [Suspect]
     Indication: SCHIZOPHRENIA, PARANOID TYPE
     Dosage: 12.5 MG
     Route: 048
     Dates: start: 20090928
  2. LEPONEX [Suspect]
     Dosage: 25 MG
     Route: 048
     Dates: start: 20090929
  3. LEPONEX [Suspect]
     Dosage: 50 MG
     Route: 048
     Dates: start: 20090930, end: 20091002
  4. LEPONEX [Suspect]
     Dosage: 75 MG
     Route: 048
     Dates: start: 20091003, end: 20091004
  5. LEPONEX [Suspect]
     Dosage: 100 MG
     Route: 048
     Dates: start: 20091005
  6. LEPONEX [Suspect]
     Dosage: 150 MG
     Route: 048
     Dates: start: 20091006, end: 20091007
  7. LEPONEX [Suspect]
     Dosage: 200 MG
     Route: 048
     Dates: start: 20091008, end: 20091011
  8. LEPONEX [Suspect]
     Dosage: 250 MG
     Route: 048
     Dates: start: 20091012
  9. LEPONEX [Suspect]
     Dosage: 100 MG
     Route: 048
     Dates: start: 20081013, end: 20091014
  10. LEPONEX [Suspect]
     Dosage: 200 MG
     Route: 048
     Dates: start: 20091015
  11. LEPONEX [Suspect]
     Dosage: 50 MG
     Route: 048
     Dates: start: 20091016, end: 20091016
  12. SEROQUEL [Concomitant]
     Dosage: 1300-900 MG
     Route: 048
     Dates: end: 20090921
  13. SEROQUEL [Concomitant]
     Dosage: 1400 MG
     Route: 048
     Dates: start: 20090922, end: 20091005
  14. SEROQUEL [Concomitant]
     Dosage: 100 MG
     Route: 048
     Dates: start: 20091006, end: 20091007
  15. SEROQUEL [Concomitant]
     Dosage: 800 MG
     Route: 048
     Dates: start: 20091008, end: 20091011
  16. SEROQUEL [Concomitant]
     Dosage: 400 MG
     Route: 048
     Dates: start: 20091012, end: 20091013
  17. SEROQUEL [Concomitant]
     Dosage: 200 MG
     Route: 048
     Dates: start: 20091016
  18. SEROQUEL [Concomitant]
     Dosage: 400 MG
     Route: 048
     Dates: start: 20091017, end: 20091104
  19. SEROQUEL [Concomitant]
     Dosage: 500 MG
     Route: 048
     Dates: start: 20091105, end: 20091108
  20. SEROQUEL [Concomitant]
     Dosage: 600 MG
     Route: 048
     Dates: start: 20091109, end: 20091119
  21. SEROQUEL [Concomitant]
     Dosage: 700 MG
     Route: 048
     Dates: start: 20091120, end: 20091122
  22. SEROQUEL [Concomitant]
     Dosage: 800 MG
     Route: 048
     Dates: start: 20091123
  23. METFORMIN [Concomitant]
  24. CONCOR [Concomitant]
     Dosage: 5/12.5 MG
     Route: 048
     Dates: end: 20091014
  25. LEVOTHYROXINE SODIUM [Concomitant]
     Dosage: 75 ?G
     Route: 048
  26. SIMVAHEXAL [Concomitant]
     Dosage: 20 MG
     Route: 048
     Dates: end: 20091016
  27. AMARYL [Concomitant]
     Dosage: 3 MG, QD
  28. PANTOZOL [Concomitant]
     Dosage: 20 MG
     Route: 048
     Dates: start: 20090923, end: 20091016
  29. PROTAPHANE MC [Concomitant]
     Dosage: 14 IU
     Route: 058
  30. METOPROLOL [Concomitant]
     Dosage: 100 MG
     Route: 048
     Dates: start: 20091013
  31. METOPROLOL SUCCINATE [Concomitant]
     Dosage: 95 MG/DAY
     Route: 048
     Dates: start: 20091014
  32. GLIMEPIRIDE [Concomitant]
     Dosage: UNK
  33. SIMVASTATIN [Concomitant]
     Dosage: UNK
  34. PIRETANIDE/RAMIPRIL [Concomitant]
  35. LEVOTHYROXINE [Concomitant]
  36. LORAZEPAM [Concomitant]
     Dosage: UNK
  37. QUETIAPINE [Concomitant]
     Dosage: UNK
  38. TAVOR (FLUCONAZOLE) [Concomitant]
     Dosage: 0.5 MG, TID
  39. TAVOR (FLUCONAZOLE) [Concomitant]
     Dosage: 1 MG, QD

REACTIONS (31)
  - ABDOMINAL PAIN UPPER [None]
  - ALCOHOLISM [None]
  - ANAEMIA [None]
  - ASTHENIA [None]
  - ATRIAL FIBRILLATION [None]
  - BLOOD GLUCOSE ABNORMAL [None]
  - BLOOD PRESSURE ABNORMAL [None]
  - BUNDLE BRANCH BLOCK RIGHT [None]
  - CARDIOMEGALY [None]
  - DEPRESSED MOOD [None]
  - DIABETES MELLITUS [None]
  - DIARRHOEA [None]
  - DRUG TOXICITY [None]
  - DYSPHORIA [None]
  - DYSPNOEA [None]
  - ERYTHROPENIA [None]
  - GASTROINTESTINAL INFECTION [None]
  - HEART RATE INCREASED [None]
  - HEPATIC STEATOSIS [None]
  - HEPATITIS [None]
  - HYPOKALAEMIA [None]
  - LIVER FUNCTION TEST ABNORMAL [None]
  - MYOCARDITIS [None]
  - PERICARDITIS [None]
  - PLEURAL EFFUSION [None]
  - POLYSEROSITIS [None]
  - PYREXIA [None]
  - SCHIZOPHRENIA, PARANOID TYPE [None]
  - SINUS RHYTHM [None]
  - TACHYARRHYTHMIA [None]
  - TACHYPNOEA [None]
